FAERS Safety Report 6121058-8 (Version None)
Quarter: 2009Q1

REPORT INFORMATION
  Report Type: 
  Country: None (occurrence: None)
  Receive Date: 20090317
  Receipt Date: 20090309
  Transmission Date: 20090719
  Serious: Yes (Hospitalization)
  Sender: FDA-Public Use
  Company Number: US-ASTRAZENECA-2009UW06115

PATIENT
  Age: 3 Year
  Sex: Male

DRUGS (6)
  1. PULMICORT RESPULES [Suspect]
     Indication: ASTHMA
     Dosage: 0.25 MG BID
     Route: 055
  2. PULMICORT RESPULES [Suspect]
     Dosage: 0.25 MG AS NEEDED
     Route: 055
  3. PULMICORT RESPULES [Suspect]
     Dosage: .5 MG BID
     Route: 055
  4. ALBUTEROL [Concomitant]
     Indication: ASTHMA
  5. MULTI-VITAMIN [Concomitant]
  6. FLUORIDE [Concomitant]

REACTIONS (2)
  - ASTHMA [None]
  - NASOPHARYNGITIS [None]
